FAERS Safety Report 5343292-7 (Version None)
Quarter: 2007Q2

REPORT INFORMATION
  Report Type: 
  Country: None (occurrence: None)
  Receive Date: 20070502
  Receipt Date: 20061005
  Transmission Date: 20071010
  Serious: Yes (Other)
  Sender: FDA-Public Use
  Company Number: PHEH2006US12559

PATIENT
  Sex: Female

DRUGS (2)
  1. LOTREL(AMLODIPINE BESILATE, BENAZEPRIL HYDROCHLORIDE) CAPSULES [Suspect]
     Indication: HYPERTENSION
     Dosage: SEE IMAGE
     Route: 048
     Dates: end: 20060901
  2. LOTREL(AMLODIPINE BESILATE, BENAZEPRIL HYDROCHLORIDE) CAPSULES [Suspect]
     Indication: HYPERTENSION
     Dosage: SEE IMAGE
     Route: 048
     Dates: end: 20060901

REACTIONS (2)
  - SWELLING FACE [None]
  - SWOLLEN TONGUE [None]
